FAERS Safety Report 8064221-1 (Version None)
Quarter: 2011Q4

REPORT INFORMATION
  Report Type: 
  Country: None (occurrence: None)
  Receive Date: 20111221
  Receipt Date: 20110705
  Transmission Date: 20120403
  Serious: No
  Sender: FDA-Public Use
  Company Number: 2011S1000043

PATIENT
  Age: 78 Year
  Sex: Male

DRUGS (9)
  1. BENADRYL [Concomitant]
  2. CARVEDILOL [Concomitant]
  3. KRYSTEXXA [Suspect]
     Indication: GOUT
     Dosage: 8 MG;X1; IV
     Route: 042
     Dates: start: 20110624, end: 20110624
  4. KRYSTEXXA [Suspect]
     Indication: GOUT
     Dosage: 8 MG;X1; IV
     Route: 042
     Dates: start: 20110608, end: 20110608
  5. KRYSTEXXA [Suspect]
     Indication: GOUT
     Dosage: 8 MG;X1; IV
     Route: 042
     Dates: start: 20110706, end: 20110706
  6. SOLU-MEDROL [Concomitant]
  7. TYLENOL (CAPLET) [Concomitant]
  8. COLCRYS [Concomitant]
  9. GLYBURIDE AND METFORMIN HYDROCHLORIDE [Concomitant]

REACTIONS (2)
  - DIZZINESS [None]
  - URTICARIA [None]
